FAERS Safety Report 8319935-2 (Version None)
Quarter: 2012Q2

REPORT INFORMATION
  Report Type: 
  Country: None (occurrence: None)
  Receive Date: 20120427
  Receipt Date: 20120425
  Transmission Date: 20120825
  Serious: Yes (Other)
  Sender: FDA-Public Use
  Company Number: US-ALLERGAN-1102818US

PATIENT
  Age: 82 Year
  Sex: Female
  Weight: 72.562 kg

DRUGS (3)
  1. OZURDEX [Suspect]
     Dosage: UNK
     Dates: start: 20101001, end: 20101001
  2. LISINOPRIL [Concomitant]
     Indication: PRODUCT USED FOR UNKNOWN INDICATION
  3. OZURDEX [Suspect]
     Indication: RETINAL VEIN OCCLUSION
     Dosage: 0.7 MG, SINGLE
     Route: 031
     Dates: start: 20110224, end: 20110224

REACTIONS (1)
  - ENDOPHTHALMITIS [None]
